FAERS Safety Report 8612504-6 (Version None)
Quarter: 2012Q3

REPORT INFORMATION
  Report Type: 
  Country: None (occurrence: None)
  Receive Date: 20120822
  Receipt Date: 20120816
  Transmission Date: 20120928
  Serious: Yes (Disabling, Other)
  Sender: FDA-Public Use
  Company Number: US-ABBOTT-12P-163-0969962-00

PATIENT
  Sex: Female
  Weight: 61.29 kg

DRUGS (16)
  1. XANAX [Interacting]
     Indication: PANIC ATTACK
  2. RIVASTIGMINE [Suspect]
     Indication: DEMENTIA
  3. HYDROCODONE BITARTRATE + ACETAMINOPHEN [Interacting]
     Indication: SPINAL DISORDER
     Dosage: ONE OR TWO TIMES A DAY
  4. ASPIRIN [Interacting]
     Indication: ANTICOAGULANT THERAPY
     Dosage: DAILY
  5. OXYBUTYNIN [Suspect]
     Indication: HYPERTONIC BLADDER
  6. MULTI-VITAMINS [Interacting]
     Indication: PRODUCT USED FOR UNKNOWN INDICATION
  7. HYDROCODONE BITARTRATE + ACETAMINOPHEN [Interacting]
     Indication: ARTHRITIS
  8. LYRICA [Suspect]
     Indication: PAIN IN EXTREMITY
  9. LYRICA [Suspect]
     Indication: SKIN BURNING SENSATION
     Route: 048
     Dates: start: 20120726, end: 20120728
  10. LISINOPRIL [Interacting]
     Indication: HYPERTENSION
  11. SYNTHROID [Interacting]
     Indication: THYROID DISORDER
     Dosage: DAILY
  12. LOVASTATIN [Suspect]
     Indication: BLOOD CHOLESTEROL INCREASED
  13. FISH OIL [Suspect]
     Indication: PRODUCT USED FOR UNKNOWN INDICATION
  14. HYDROCODONE BITARTRATE + ACETAMINOPHEN [Interacting]
     Indication: PAIN
  15. XANAX [Interacting]
     Indication: ANXIETY
  16. ASPIRIN [Interacting]
     Indication: HYPERTENSION

REACTIONS (23)
  - CHILLS [None]
  - DRUG DOSE OMISSION [None]
  - PYREXIA [None]
  - DRY MOUTH [None]
  - ABDOMINAL PAIN UPPER [None]
  - INSOMNIA [None]
  - MOBILITY DECREASED [None]
  - GAIT DISTURBANCE [None]
  - MALAISE [None]
  - MUSCLE SPASMS [None]
  - HEADACHE [None]
  - FATIGUE [None]
  - WEIGHT DECREASED [None]
  - DRUG INTERACTION [None]
  - OEDEMA PERIPHERAL [None]
  - VISION BLURRED [None]
  - BREAST NEOPLASM [None]
  - NAUSEA [None]
  - PARAESTHESIA [None]
  - INFLUENZA LIKE ILLNESS [None]
  - HYPERTENSION [None]
  - PAIN [None]
  - DIZZINESS [None]
